FAERS Safety Report 6509397-X (Version None)
Quarter: 2009Q4

REPORT INFORMATION
  Report Type: 
  Country: None (occurrence: None)
  Receive Date: 20091222
  Receipt Date: 20091211
  Transmission Date: 20100525
  Serious: Yes (Other)
  Sender: FDA-Public Use
  Company Number: US-RB-027072-09

PATIENT
  Age: 43 Year
  Sex: Female

DRUGS (1)
  1. DELSYM ADULT GRAPE 3 OZ [Suspect]
     Dosage: TOOK 1 LITTLE UNDER 10ML OF PRODUCT
     Route: 048
     Dates: start: 20091211

REACTIONS (4)
  - DIZZINESS [None]
  - FEELING ABNORMAL [None]
  - HEAD DISCOMFORT [None]
  - SWOLLEN TONGUE [None]
